FAERS Safety Report 20386253 (Version 1)
Quarter: 2022Q1

REPORT INFORMATION
  Report Type: Spontaneous
  Country: US (occurrence: US)
  Receive Date: 20220127
  Receipt Date: 20220127
  Transmission Date: 20220423
  Serious: No
  Sender: FDA-Public Use
  Company Number: US-ALLERGAN-2132874US

PATIENT
  Age: 6 Decade
  Sex: Female

DRUGS (1)
  1. BOTOX [Suspect]
     Active Substance: ONABOTULINUMTOXINA
     Indication: Product used for unknown indication
     Dosage: UNK UNK, SINGLE

REACTIONS (5)
  - Blood pressure abnormal [Unknown]
  - Hyperphagia [Unknown]
  - Visual impairment [Unknown]
  - Migraine [Unknown]
  - Drug ineffective [Unknown]
